FAERS Safety Report 7244168-0 (Version None)
Quarter: 2011Q1

REPORT INFORMATION
  Report Type: 
  Country: None (occurrence: None)
  Receive Date: 20110119
  Receipt Date: 20110119
  Transmission Date: 20110831
  Serious: Yes (Disabling)
  Sender: FDA-Public Use
  Company Number: None

PATIENT
  Age: 48 Year
  Sex: Female
  Weight: 105.2345 kg

DRUGS (2)
  1. ACETAMINOPHEN AND HYDROCODONE BITARTRATE [Concomitant]
  2. TYLENOL (CAPLET) [Suspect]
     Indication: ARTHRITIS
     Dosage: 650MG 2 EVERY 8 HOURS PO
     Route: 048
     Dates: start: 20070101, end: 20090110

REACTIONS (5)
  - GAIT DISTURBANCE [None]
  - IMMUNE SYSTEM DISORDER [None]
  - LETHARGY [None]
  - HEPATIC CIRRHOSIS [None]
  - PRURITUS [None]
